FAERS Safety Report 11144790 (Version 1)
Quarter: 2015Q2

REPORT INFORMATION
  Report Type: Spontaneous
  Country: IT (occurrence: IT)
  Receive Date: 20150528
  Receipt Date: 20150528
  Transmission Date: 20150821
  Serious: Yes (Other)
  Sender: FDA-Public Use
  Company Number: IT-009507513-1505ITA009595

PATIENT
  Age: 65 Year
  Sex: Female

DRUGS (3)
  1. RIBAVIRIN. [Suspect]
     Active Substance: RIBAVIRIN
     Dosage: UNK
  2. SOFOSBUVIR [Suspect]
     Active Substance: SOFOSBUVIR
  3. SIMEPREVIR [Suspect]
     Active Substance: SIMEPREVIR

REACTIONS (3)
  - Blood bilirubin increased [Unknown]
  - Chromaturia [Unknown]
  - Pruritus [Unknown]
